FAERS Safety Report 6243795-7 (Version None)
Quarter: 2009Q2

REPORT INFORMATION
  Report Type: 
  Country: None (occurrence: None)
  Receive Date: 20090624
  Receipt Date: 20090617
  Transmission Date: 20091009
  Serious: Yes (Death)
  Sender: FDA-Public Use
  Company Number: PHHY2009BR24170

PATIENT
  Sex: Female

DRUGS (6)
  1. DIOVAN [Suspect]
     Indication: HYPERTENSION
     Dosage: UNK
  2. FORASEQ [Suspect]
     Indication: ASTHMA
     Dosage: UNK
  3. FORADIL [Suspect]
     Indication: ASTHMA
     Dosage: 1 CAPSULE DAILY
  4. DAFLON (DIOSMIN) [Concomitant]
     Indication: VASODILATATION
     Dosage: 1 TABLET (500 MG) DAILY
     Route: 048
     Dates: end: 20090104
  5. OMEPRAZOL ^ACYFABRIK^ [Concomitant]
     Indication: HIATUS HERNIA
     Dosage: 1 TABLET (20 MG) IN FASTING IN THE MORNING
     Route: 048
     Dates: end: 20090104
  6. CLOPIDOGREL [Concomitant]
     Indication: CARDIOVASCULAR EVENT PROPHYLAXIS
     Dosage: 1 TABLET (75 MG) DAILY
     Route: 048
     Dates: end: 20090104

REACTIONS (1)
  - DYSPNOEA [None]
